FAERS Safety Report 25179408 (Version 1)
Quarter: 2025Q2

REPORT INFORMATION
  Report Type: Spontaneous
  Country: US (occurrence: None)
  Receive Date: 20250408
  Receipt Date: 20250408
  Transmission Date: 20250716
  Serious: Yes (Disabling)
  Sender: FDA-CTU
  Company Number: None

PATIENT
  Age: 40 Year
  Sex: Male
  Weight: 99 kg

DRUGS (1)
  1. NUVARING [Suspect]
     Active Substance: ETHINYL ESTRADIOL\ETONOGESTREL
     Indication: Contraception
     Dates: start: 20250311

REACTIONS (5)
  - Gynaecomastia [None]
  - Tenderness [None]
  - Swelling [None]
  - Breast mass [None]
  - Exposure via body fluid [None]

NARRATIVE: CASE EVENT DATE: 20250405
